FAERS Safety Report 7659467-8 (Version None)
Quarter: 2011Q3

REPORT INFORMATION
  Report Type: 
  Country: None (occurrence: None)
  Receive Date: 20110805
  Receipt Date: 20110727
  Transmission Date: 20111222
  Serious: Yes (Other)
  Sender: FDA-Public Use
  Company Number: CA-JNJFOC-20110801006

PATIENT
  Sex: Male
  Weight: 102.3 kg

DRUGS (2)
  1. REMICADE [Suspect]
     Indication: COLITIS ULCERATIVE
     Route: 042
     Dates: start: 20110401
  2. PREDNISONE [Concomitant]
     Dosage: 6 WEEKS
     Route: 065

REACTIONS (3)
  - OEDEMA PERIPHERAL [None]
  - ANAEMIA [None]
  - WEIGHT INCREASED [None]
